FAERS Safety Report 5637280-0 (Version None)
Quarter: 2008Q1

REPORT INFORMATION
  Report Type: 
  Country: None (occurrence: None)
  Receive Date: 20080219
  Receipt Date: 20080204
  Transmission Date: 20080703
  Serious: Yes (Other)
  Sender: FDA-Public Use
  Company Number: CHPA2008US02064

PATIENT
  Age: 47 Year
  Sex: Female

DRUGS (2)
  1. EXCEDRIN UNKNOWN (NCH)(UNKNOWN) UNKNOWN [Suspect]
     Dosage: PRN
  2. VERAPAMIL [Suspect]
     Dosage: QD

REACTIONS (4)
  - CARDIAC MYXOMA [None]
  - DIZZINESS [None]
  - HYPOTENSION [None]
  - LOSS OF CONSCIOUSNESS [None]
